FAERS Safety Report 8259995-0 (Version None)
Quarter: 2012Q2

REPORT INFORMATION
  Report Type: 
  Country: None (occurrence: None)
  Receive Date: 20120404
  Receipt Date: 20120328
  Transmission Date: 20120825
  Serious: Yes (Other)
  Sender: FDA-Public Use
  Company Number: US-ABBOTT-12P-163-0919624-00

PATIENT
  Age: 66 Year
  Sex: Male

DRUGS (12)
  1. LOVASTATIN [Concomitant]
     Indication: BLOOD CHOLESTEROL INCREASED
  2. TRIANTER ENA HCTZ [Concomitant]
     Indication: FLUID RETENTION
     Dosage: 75/50MG
  3. VITAMIN B-12 [Concomitant]
     Indication: VITAMIN SUPPLEMENTATION
  4. VITAMIN K TAB [Concomitant]
     Indication: VITAMIN SUPPLEMENTATION
  5. TOPICAL SPRAY [Concomitant]
  6. HUMIRA [Suspect]
     Indication: PSORIASIS
     Dates: start: 20120209
  7. OMEPRAZOLE [Concomitant]
     Indication: DYSPEPSIA
  8. BENAZEPRIL HYDROCHLORIDE [Concomitant]
     Indication: HYPERTENSION
  9. MG [Concomitant]
     Indication: MINERAL SUPPLEMENTATION
  10. ZINC SULFATE [Concomitant]
     Indication: MINERAL SUPPLEMENTATION
  11. TRIANTER ENA HCTZ [Concomitant]
     Indication: PROPHYLAXIS
  12. IRON [Concomitant]
     Indication: MINERAL SUPPLEMENTATION

REACTIONS (5)
  - CARPAL TUNNEL SYNDROME [None]
  - PRURITUS [None]
  - ERYTHEMA [None]
  - INJECTION SITE HAEMORRHAGE [None]
  - PSORIASIS [None]
